FAERS Safety Report 9083611 (Version 1)
Quarter: 2013Q1

REPORT INFORMATION
  Report Type: Report from Study
  Country: US (occurrence: US)
  Receive Date: 20130130
  Receipt Date: 20130130
  Transmission Date: 20140127
  Serious: No
  Sender: FDA-Public Use
  Company Number: US-ABBOTT-12P-163-0984193-00

PATIENT
  Sex: Female
  Weight: 74.91 kg

DRUGS (2)
  1. HUMIRA [Suspect]
     Dates: start: 201101
  2. PREDNISONE [Concomitant]
     Indication: BEHCET^S SYNDROME

REACTIONS (1)
  - Off label use [Unknown]
